FAERS Safety Report 4717020-X (Version None)
Quarter: 2005Q3

REPORT INFORMATION
  Report Type: 
  Country: None (occurrence: None)
  Receive Date: 20050719
  Receipt Date: 20050308
  Transmission Date: 20060218
  Serious: Yes (Other)
  Sender: FDA-Public Use
  Company Number: CA-BRISTOL-MYERS SQUIBB COMPANY-12891396

PATIENT
  Age: 74 Year
  Sex: Male

DRUGS (2)
  1. ABATACEPT [Suspect]
     Indication: RHEUMATOID ARTHRITIS
     Route: 042
     Dates: start: 20020522
  2. METHOTREXATE [Suspect]
     Indication: RHEUMATOID ARTHRITIS
     Dates: start: 19980201, end: 20040706

REACTIONS (5)
  - BASAL CELL CARCINOMA [None]
  - HAEMATOMA [None]
  - INFECTION [None]
  - POST PROCEDURAL COMPLICATION [None]
  - WOUND DEHISCENCE [None]
